FAERS Safety Report 9892124 (Version 2)
Quarter: 2014Q1

REPORT INFORMATION
  Report Type: Spontaneous
  Country: US (occurrence: US)
  Receive Date: 20140212
  Receipt Date: 20140219
  Transmission Date: 20141002
  Serious: Yes (Other)
  Sender: FDA-Public Use
  Company Number: PHEH2014US002771

PATIENT
  Sex: Female

DRUGS (8)
  1. DIOVAN [Suspect]
     Dosage: 2 DF (80 MG), DAILY
  2. DIOVAN [Suspect]
     Dosage: 1 DF (160 MG), QD (INITIALLY IN DAY, LATER CHANGED TO NIGHT)
  3. HYDROCHLOROTHIAZIDE [Suspect]
  4. CATAPRES /USA/ [Suspect]
  5. TRANDATE [Suspect]
  6. TENORMIN [Suspect]
  7. AUGMENTIN [Suspect]
  8. CIPRO-C [Suspect]

REACTIONS (4)
  - Fall [Unknown]
  - Ankle fracture [Unknown]
  - Flushing [Unknown]
  - Drug hypersensitivity [Unknown]
